FAERS Safety Report 9053666 (Version 3)
Quarter: 2013Q1

REPORT INFORMATION
  Report Type: Spontaneous
  Country: US (occurrence: None)
  Receive Date: 20130117
  Receipt Date: 20130212
  Transmission Date: 20140127
  Serious: Yes (Hospitalization)
  Sender: FDA-Public Use
  Company Number: VAL_01274_2013

PATIENT
  Sex: Female

DRUGS (3)
  1. METOPROLOL TARTRATE [Suspect]
     Indication: HYPERTENSION
     Dosage: 325 MG, DAILY REGIMEN #1)
  2. DIOVAN HCT [Suspect]
     Indication: HYPERTENSION
     Dosage: (1 DF, 160 /25 MG, DAILY FROM OVER A YEAR (REGIMEN #1) )
  3. ECOTRIN [Suspect]

REACTIONS (2)
  - Blood pressure increased [None]
  - Nervousness [None]
